FAERS Safety Report 9112132 (Version 1)
Quarter: 2013Q1

REPORT INFORMATION
  Report Type: Spontaneous
  Country: US (occurrence: US)
  Receive Date: 20130219
  Receipt Date: 20130219
  Transmission Date: 20140127
  Serious: No
  Sender: FDA-Public Use
  Company Number: US-BRISTOL-MYERS SQUIBB COMPANY-17055054

PATIENT
  Age: 78 Year
  Sex: Female

DRUGS (1)
  1. ORENCIA FOR INJ [Suspect]
     Dosage: LAST INF 17OCT12,5DEC12
     Route: 042

REACTIONS (4)
  - Drug ineffective [Unknown]
  - Wound [Unknown]
  - Blister [Unknown]
  - Joint swelling [Unknown]
